FAERS Safety Report 5117326-9 (Version None)
Quarter: 2006Q3

REPORT INFORMATION
  Report Type: 
  Country: None (occurrence: None)
  Receive Date: 20060929
  Receipt Date: 20060530
  Transmission Date: 20061208
  Serious: Yes (Life-Threatening, Hospitalization)
  Sender: FDA-Public Use
  Company Number: 2006UW10430

PATIENT
  Age: 15049 Day
  Sex: Female
  Weight: 56.8 kg

DRUGS (3)
  1. SEROQUEL [Suspect]
     Route: 048
  2. CLONAZEPAM [Concomitant]
  3. HALDOL SOLUTAB [Concomitant]

REACTIONS (12)
  - ALANINE AMINOTRANSFERASE INCREASED [None]
  - ASPARTATE AMINOTRANSFERASE INCREASED [None]
  - ATELECTASIS [None]
  - BLOOD ALCOHOL INCREASED [None]
  - BLOOD GLUCOSE INCREASED [None]
  - BLOOD MAGNESIUM INCREASED [None]
  - BLOOD POTASSIUM DECREASED [None]
  - BLOOD UREA DECREASED [None]
  - INTUBATION [None]
  - OVERDOSE [None]
  - RESPIRATORY DEPRESSION [None]
  - SEDATION [None]
